FAERS Safety Report 5935982-X (Version None)
Quarter: 2008Q4

REPORT INFORMATION
  Report Type: 
  Country: None (occurrence: None)
  Receive Date: 20081030
  Receipt Date: 20081024
  Transmission Date: 20090506
  Serious: Yes (Hospitalization, Other)
  Sender: FDA-Public Use
  Company Number: US-MERCK-0805USA00446

PATIENT
  Sex: Female

DRUGS (1)
  1. FOSAMAX [Suspect]
     Indication: MALAISE
     Route: 048

REACTIONS (9)
  - ANXIETY [None]
  - CAROTID ARTERY DISEASE [None]
  - DEPRESSION [None]
  - GASTROINTESTINAL DISORDER [None]
  - OSTEOMYELITIS [None]
  - PAIN IN JAW [None]
  - PERIODONTITIS [None]
  - TEMPOROMANDIBULAR JOINT SYNDROME [None]
  - WEIGHT DECREASED [None]
